FAERS Safety Report 14416881 (Version 1)
Quarter: 2018Q1

REPORT INFORMATION
  Report Type: Spontaneous
  Country: US (occurrence: US)
  Receive Date: 20180119
  Receipt Date: 20180119
  Transmission Date: 20180509
  Serious: Yes (Hospitalization)
  Sender: FDA-Public Use
  Company Number: None

PATIENT
  Age: 58 Year
  Sex: Male

DRUGS (6)
  1. TENOFOVIR [Concomitant]
     Active Substance: TENOFOVIR
  2. RILPIVIRINE [Concomitant]
     Active Substance: RILPIVIRINE
  3. EMTRICITABINE [Concomitant]
     Active Substance: EMTRICITABINE
  4. PREDNISONE. [Concomitant]
     Active Substance: PREDNISONE
  5. MAALOX ANTACID [Concomitant]
     Active Substance: ALUMINUM HYDROXIDE\DIMETHICONE\MAGNESIUM HYDROXIDE
  6. SULFAMETHOXAZOLE/TRIMETHOPRIM [Suspect]
     Active Substance: SULFAMETHOXAZOLE\TRIMETHOPRIM
     Indication: PNEUMONIA
     Dosage: 800/160MG EVERY 8 HOURS PO
     Route: 048
     Dates: start: 20171023, end: 20171105

REACTIONS (5)
  - Hyperkalaemia [None]
  - Blood lactic acid increased [None]
  - Sinusitis [None]
  - Nephropathy toxic [None]
  - Acute respiratory failure [None]

NARRATIVE: CASE EVENT DATE: 20171105
